FAERS Safety Report 8990888 (Version 2)
Quarter: 2013Q1

REPORT INFORMATION
  Report Type: Spontaneous
  Country: JP (occurrence: JP)
  Receive Date: 20121231
  Receipt Date: 20130201
  Transmission Date: 20140127
  Serious: Yes (Other)
  Sender: FDA-Public Use
  Company Number: PHHY2012JP108912

PATIENT
  Age: 68 Year
  Sex: Male
  Weight: 51 kg

DRUGS (6)
  1. AFINITOR [Suspect]
     Indication: RENAL CANCER
     Dosage: 10 MG/DAY
     Route: 048
     Dates: start: 20120824, end: 20121116
  2. PROMAC [Concomitant]
     Dosage: 150 MG, UNK
     Route: 048
     Dates: start: 20120511
  3. FOIPAN [Concomitant]
     Indication: AMYLASE INCREASED
     Dosage: 600 MG, UNK
     Route: 048
     Dates: start: 20120629
  4. BLOPRESS [Concomitant]
     Indication: HYPERTENSION
     Dosage: 8 MG, UNK
     Dates: start: 20120824
  5. ADALAT [Concomitant]
     Indication: HYPERTENSION
     Dosage: 20 MG, UNK
     Dates: start: 20120518
  6. HIRUDOID [Concomitant]
     Indication: DERMATITIS
     Dosage: 2 G, UNK
     Route: 062
     Dates: start: 20120511

REACTIONS (4)
  - Metastases to lung [Not Recovered/Not Resolved]
  - Malignant neoplasm progression [Not Recovered/Not Resolved]
  - Renal cancer [Unknown]
  - Eosinophilia [Recovered/Resolved]
